FAERS Safety Report 10012977 (Version 1)
Quarter: 2014Q1

REPORT INFORMATION
  Report Type: Spontaneous
  Country: US (occurrence: US)
  Receive Date: 20140314
  Receipt Date: 20140314
  Transmission Date: 20141002
  Serious: No
  Sender: FDA-Public Use
  Company Number: US-PFIZER INC-2014070486

PATIENT
  Sex: Female

DRUGS (1)
  1. ADVIL GELCAPS [Suspect]
     Indication: PAIN
     Dosage: UNK
     Dates: start: 20140228, end: 20140303

REACTIONS (1)
  - Blood potassium increased [Unknown]
